FAERS Safety Report 14568612 (Version 1)
Quarter: 2018Q1

REPORT INFORMATION
  Report Type: Spontaneous
  Country: US (occurrence: US)
  Receive Date: 20180217
  Receipt Date: 20180217
  Transmission Date: 20180509
  Serious: Yes (Hospitalization)
  Sender: FDA-Public Use
  Company Number: None

PATIENT
  Age: 81 Year
  Sex: Female

DRUGS (13)
  1. CAPECITABINE. [Concomitant]
     Active Substance: CAPECITABINE
  2. ROZEREM [Concomitant]
     Active Substance: RAMELTEON
  3. MORPHINE [Concomitant]
     Active Substance: MORPHINE
  4. AMLODIPINE [Concomitant]
     Active Substance: AMLODIPINE BESYLATE
  5. BUSPIRONE [Concomitant]
     Active Substance: BUSPIRONE HYDROCHLORIDE
  6. DIPHEN/ATROP [Concomitant]
     Active Substance: ATROPINE SULFATE\DIPHENOXYLATE
  7. CAPECITABINE. [Suspect]
     Active Substance: CAPECITABINE
     Indication: NEOPLASM MALIGNANT
     Dosage: ?          OTHER FREQUENCY:TWICE DAILY 2 WKS;?
     Route: 048
     Dates: start: 20170920
  8. FISH OIL [Concomitant]
     Active Substance: FISH OIL
  9. HYDROCO/APAP [Concomitant]
     Active Substance: ACETAMINOPHEN\HYDROCODONE
  10. MULTI-VITAMIN [Concomitant]
     Active Substance: .ALPHA.-TOCOPHEROL ACETATE, DL-\ASCORBIC ACID\CYANOCOBALAMIN\FLUORIDE ION\FOLIC ACID\NIACIN\PYRIDOXINE\RIBOFLAVIN\THIAMINE\VITAMIN A\VITAMIN D
  11. CALTRATE [Concomitant]
     Active Substance: CALCIUM CARBONATE
  12. DONEPEZIL. [Concomitant]
     Active Substance: DONEPEZIL
  13. ONDANSETRON [Concomitant]
     Active Substance: ONDANSETRON

REACTIONS (2)
  - Drug dose omission [None]
  - Cellulitis [None]

NARRATIVE: CASE EVENT DATE: 20180125
